FAERS Safety Report 6397914-2 (Version None)
Quarter: 2009Q4

REPORT INFORMATION
  Report Type: 
  Country: None (occurrence: None)
  Receive Date: 20091006
  Receipt Date: 20090922
  Transmission Date: 20100525
  Serious: Yes (Hospitalization)
  Sender: FDA-Public Use
  Company Number: 2009SP002476

PATIENT
  Age: 78 Year
  Sex: Female

DRUGS (15)
  1. XOPENEX [Suspect]
     Indication: CHRONIC OBSTRUCTIVE PULMONARY DISEASE
     Dosage: 0.63 MG/3ML;PRN;INHALATION; 0.31 MG/3ML; 1X; INHALATION; 0.63 MG/3ML;Q8H; INHALATION
     Route: 055
     Dates: start: 20090901, end: 20090901
  2. XOPENEX [Suspect]
     Indication: CHRONIC OBSTRUCTIVE PULMONARY DISEASE
     Dosage: 0.63 MG/3ML;PRN;INHALATION; 0.31 MG/3ML; 1X; INHALATION; 0.63 MG/3ML;Q8H; INHALATION
     Route: 055
     Dates: start: 20090901, end: 20090907
  3. SPIRIVA [Concomitant]
  4. TOPROL-XL [Concomitant]
  5. TOFRANIL [Concomitant]
  6. VALIUM [Concomitant]
  7. DIAZEPAM [Concomitant]
  8. HYDROCHLOROTHIAZIDE [Concomitant]
  9. ASPIRIN [Concomitant]
  10. IMIPRAMINE [Concomitant]
  11. PREDNISONE [Concomitant]
  12. NEXIUM [Concomitant]
  13. ANTIVERT /00007101/ [Concomitant]
  14. NASONEX [Concomitant]
  15. SEREVENT [Concomitant]

REACTIONS (6)
  - ATELECTASIS [None]
  - BRONCHITIS [None]
  - CHRONIC OBSTRUCTIVE PULMONARY DISEASE [None]
  - DIZZINESS [None]
  - MYALGIA [None]
  - PALPITATIONS [None]
